FAERS Safety Report 15075139 (Version 1)
Quarter: 2018Q2

REPORT INFORMATION
  Report Type: Spontaneous
  Country: US (occurrence: US)
  Receive Date: 20180627
  Receipt Date: 20180627
  Transmission Date: 20180711
  Serious: Yes (Other)
  Sender: FDA-Public Use
  Company Number: US-SAOL THERAPEUTICS-2017SAO03433

PATIENT
  Age: 47 Year
  Sex: Female
  Weight: 56.69 kg

DRUGS (4)
  1. BACLOFEN. [Suspect]
     Active Substance: BACLOFEN
     Dosage: UNK
     Route: 037
     Dates: end: 20171206
  2. BACLOFEN. [Suspect]
     Active Substance: BACLOFEN
     Dosage: 500 ?G, \DAY
     Route: 037
     Dates: start: 20171206
  3. FENTANYL. [Suspect]
     Active Substance: FENTANYL
     Route: 037
  4. ^MANY^ UNPSPECIFIED MEDICATIONS [Concomitant]

REACTIONS (2)
  - Back pain [Recovered/Resolved]
  - Device failure [Recovered/Resolved]

NARRATIVE: CASE EVENT DATE: 2017
